FAERS Safety Report 6040131-6 (Version None)
Quarter: 2009Q1

REPORT INFORMATION
  Report Type: 
  Country: None (occurrence: None)
  Receive Date: 20090116
  Receipt Date: 20071219
  Transmission Date: 20090719
  Serious: No
  Sender: FDA-Public Use
  Company Number: US-BRISTOL-MYERS SQUIBB COMPANY-14019848

PATIENT
  Age: 29 Year
  Sex: Female
  Weight: 79 kg

DRUGS (2)
  1. ABILIFY [Suspect]
     Indication: BIPOLAR DISORDER
     Dates: start: 20040101
  2. ABILIFY [Suspect]
     Indication: MENTAL DISORDER
     Dates: start: 20040101

REACTIONS (5)
  - CONFUSIONAL STATE [None]
  - GAIT DISTURBANCE [None]
  - INCONTINENCE [None]
  - POSTURE ABNORMAL [None]
  - TREMOR [None]
